FAERS Safety Report 4372194-8 (Version None)
Quarter: 2004Q2

REPORT INFORMATION
  Report Type: 
  Country: None (occurrence: None)
  Receive Date: 20040607
  Receipt Date: 20040526
  Transmission Date: 20050107
  Serious: Yes (Other)
  Sender: FDA-Public Use
  Company Number: AT-GLAXOSMITHKLINE-B0334305A

PATIENT
  Sex: Female

DRUGS (5)
  1. LAMICTAL [Suspect]
     Indication: BIPOLAR DISORDER
     Route: 048
     Dates: start: 20040316, end: 20040416
  2. VALPROIC ACID [Concomitant]
     Dosage: 500MG PER DAY
     Route: 048
     Dates: start: 20040311
  3. ESCITALOPRAM [Concomitant]
     Route: 048
     Dates: start: 20040312
  4. TRAZODONE HCL [Concomitant]
     Route: 048
     Dates: start: 20040331
  5. HYDROCHLOROTHIAZID + AMILORID [Concomitant]
     Dosage: 1TAB ALTERNATE DAYS
     Route: 048
     Dates: start: 20040322

REACTIONS (1)
  - PSORIASIS [None]
